FAERS Safety Report 6779711-9 (Version None)
Quarter: 2010Q2

REPORT INFORMATION
  Report Type: 
  Country: None (occurrence: None)
  Receive Date: 20100618
  Receipt Date: 20100614
  Transmission Date: 20101027
  Serious: Yes (Life-Threatening)
  Sender: FDA-Public Use
  Company Number: PHHY2010DE38919

PATIENT
  Age: 70 Year
  Sex: Male
  Weight: 80 kg

DRUGS (4)
  1. RASILEZ [Suspect]
     Indication: HYPERTENSION
     Dosage: 300 MG, PER DAY
     Dates: start: 20080101, end: 20100519
  2. CARMEN [Concomitant]
     Indication: HYPERTENSION
     Dosage: 10 MG, PER DAY
  3. DIOVAN [Concomitant]
     Indication: CARDIAC FAILURE
     Dosage: 80 MG, PER DAY
     Dates: start: 20100510
  4. SEVELAMER [Concomitant]
     Indication: RENAL FAILURE
     Dosage: 800 MG, PER DAY
     Dates: start: 20100602

REACTIONS (1)
  - CARDIAC FAILURE [None]
